FAERS Safety Report 18115957 (Version 2)
Quarter: 2021Q3

REPORT INFORMATION
  Report Type: Report from Study
  Country: US (occurrence: US)
  Receive Date: 20200806
  Receipt Date: 20210707
  Transmission Date: 20211014
  Serious: No
  Sender: FDA-Public Use
  Company Number: US-SHIRE-US202025175

PATIENT
  Sex: Female
  Weight: 68.48 kg

DRUGS (2)
  1. TEDUGLUTIDE [Suspect]
     Active Substance: TEDUGLUTIDE
     Indication: SHORT-BOWEL SYNDROME
     Dosage: UNK
     Route: 065
  2. TEDUGLUTIDE [Suspect]
     Active Substance: TEDUGLUTIDE
     Dosage: 0.347 MILLILITER, QD
     Route: 058

REACTIONS (3)
  - Fluid imbalance [Recovering/Resolving]
  - Feeling abnormal [Recovering/Resolving]
  - Weight decreased [Unknown]
